FAERS Safety Report 8882940 (Version 1)
Quarter: 2012Q4

REPORT INFORMATION
  Report Type: 
  Country: US (occurrence: US)
  Receive Date: 20121102
  Receipt Date: 20121102
  Transmission Date: 20130627
  Serious: No
  Sender: FDA-Public Use
  Company Number: US-ASTRAZENECA-2011SE72232

PATIENT
  Age: 71 Year
  Sex: Male
  Weight: 108.9 kg

DRUGS (4)
  1. CRESTOR [Suspect]
     Indication: HYPERCHOLESTEROLAEMIA
     Route: 048
  2. TRIPOLEX [Concomitant]
     Indication: BLOOD TRIGLYCERIDES ABNORMAL
  3. FUROSEMIDE [Concomitant]
     Indication: BLOOD PRESSURE ABNORMAL
  4. METOPROLOL [Concomitant]
     Indication: BLOOD PRESSURE ABNORMAL

REACTIONS (3)
  - Paraesthesia [Unknown]
  - Pain in extremity [Unknown]
  - Dizziness [Unknown]
